FAERS Safety Report 9598087 (Version 1)
Quarter: 2013Q4

REPORT INFORMATION
  Report Type: Spontaneous
  Country: US (occurrence: US)
  Receive Date: 20131004
  Receipt Date: 20131004
  Transmission Date: 20140711
  Serious: No
  Sender: FDA-Public Use
  Company Number: US-AMGEN-USASP2013022608

PATIENT
  Age: 53 Year
  Sex: Female
  Weight: 92.97 kg

DRUGS (12)
  1. ENBREL [Suspect]
     Indication: PRODUCT USED FOR UNKNOWN INDICATION
     Dosage: 50 MG, QWK
     Route: 058
     Dates: start: 2007, end: 2009
  2. AMITRIPTYLIN [Concomitant]
     Dosage: 100 MG, UNK
  3. AMLODIPINE [Concomitant]
     Dosage: 10 MG, UNK
  4. MAGNESIUM                          /00123201/ [Concomitant]
     Dosage: 300 MG, UNK
  5. METFORMIN                          /00082702/ [Concomitant]
     Dosage: 500 MG, UNK
  6. LEVOTHYROXIN [Concomitant]
     Dosage: 25 MUG, UNK
  7. ZYRTEC [Concomitant]
     Dosage: 5 MG, UNK
  8. SINGULAIR [Concomitant]
     Dosage: 10 MG, UNK
  9. LIPITOR [Concomitant]
     Dosage: 10 MG, UNK
  10. MULTIVITAMINS, PLAIN [Concomitant]
     Dosage: UNK
  11. ASPIRIN [Concomitant]
     Dosage: 81 MG, UNK
  12. LOSARTAN POTASSIUM [Concomitant]
     Dosage: 25 MG, UNK

REACTIONS (1)
  - Drug effect decreased [Unknown]
